FAERS Safety Report 15092878 (Version 2)
Quarter: 2018Q3

REPORT INFORMATION
  Report Type: Report from Study
  Country: GB (occurrence: GB)
  Receive Date: 20180629
  Receipt Date: 20180823
  Transmission Date: 20181010
  Serious: Yes (Hospitalization, Other)
  Sender: FDA-Public Use
  Company Number: GB-JNJFOC-20180501646

PATIENT
  Age: 36 Year
  Sex: Female
  Weight: 70 kg

DRUGS (2)
  1. CLARELUX [Concomitant]
     Active Substance: CLOBETASOL PROPIONATE
     Dosage: 1?2 TIMES PER WEEK
     Route: 065
  2. STELARA [Suspect]
     Active Substance: USTEKINUMAB
     Indication: PSORIASIS
     Route: 058
     Dates: start: 201408

REACTIONS (8)
  - Eustachian tube disorder [Not Recovered/Not Resolved]
  - Respiratory tract infection [Not Recovered/Not Resolved]
  - Sinusitis [Unknown]
  - Upper gastrointestinal haemorrhage [Unknown]
  - Peripheral swelling [Recovered/Resolved]
  - Psoriasis [Unknown]
  - Ill-defined disorder [Unknown]
  - Psoriatic arthropathy [Unknown]

NARRATIVE: CASE EVENT DATE: 20150323
